FAERS Safety Report 7492033-6 (Version None)
Quarter: 2011Q2

REPORT INFORMATION
  Report Type: 
  Country: None (occurrence: None)
  Receive Date: 20110519
  Receipt Date: 20110510
  Transmission Date: 20111010
  Serious: Yes (Hospitalization, Other)
  Sender: FDA-Public Use
  Company Number: CH-ASTRAZENECA-2011SE27529

PATIENT
  Age: 36 Year
  Sex: Female

DRUGS (7)
  1. PREDNISONE [Suspect]
     Route: 065
  2. NEXIUM [Suspect]
     Route: 048
  3. RISPERDAL [Suspect]
     Indication: PSYCHOTIC DISORDER
     Route: 065
  4. AZATHIOPRINE [Suspect]
     Route: 065
  5. ACTONEL [Suspect]
     Route: 065
  6. CALCIMAGON D3 [Concomitant]
     Route: 065
  7. MESTINON [Suspect]
     Indication: MYASTHENIA GRAVIS
     Route: 065

REACTIONS (1)
  - DRUG EXPOSURE DURING PREGNANCY [None]
